FAERS Safety Report 5843564-3 (Version None)
Quarter: 2008Q3

REPORT INFORMATION
  Report Type: 
  Country: None (occurrence: None)
  Receive Date: 20080813
  Receipt Date: 20080521
  Transmission Date: 20090109
  Serious: No
  Sender: FDA-Public Use
  Company Number: A0722131A

PATIENT
  Age: 86 Year
  Sex: Female

DRUGS (6)
  1. COREG CR [Suspect]
     Indication: HYPERTENSION
     Dosage: 20MG PER DAY
     Route: 048
     Dates: start: 20080201
  2. COUMADIN [Concomitant]
  3. LISINOPRIL [Concomitant]
  4. WATER PILL [Concomitant]
  5. HYDROCHLOROTHIAZIDE [Concomitant]
  6. ATIVAN [Concomitant]

REACTIONS (4)
  - DRUG DISPENSING ERROR [None]
  - MALAISE [None]
  - MYALGIA [None]
  - PERIPHERAL COLDNESS [None]
